FAERS Safety Report 4924489-4 (Version None)
Quarter: 2006Q1

REPORT INFORMATION
  Report Type: 
  Country: None (occurrence: None)
  Receive Date: 20060222
  Receipt Date: 20060207
  Transmission Date: 20060701
  Serious: Yes (Disabling)
  Sender: FDA-Public Use
  Company Number: 033-12

PATIENT
  Age: 60 Year
  Sex: Female

DRUGS (1)
  1. TEVETEN HCT [Suspect]

REACTIONS (1)
  - DEAFNESS UNILATERAL [None]
